FAERS Safety Report 6245838-3 (Version None)
Quarter: 2009Q2

REPORT INFORMATION
  Report Type: 
  Country: None (occurrence: None)
  Receive Date: 20090625
  Receipt Date: 20090617
  Transmission Date: 20091009
  Serious: Yes (Death, Hospitalization)
  Sender: FDA-Public Use
  Company Number: US-GENENTECH-284286

PATIENT
  Sex: Female

DRUGS (17)
  1. RITUXIMAB [Suspect]
     Indication: B-CELL LYMPHOMA
     Dosage: 375 MG/M2, Q21D
     Route: 042
  2. CYCLOPHOSPHAMIDE [Suspect]
     Indication: B-CELL LYMPHOMA
     Dosage: 300 MG/M2, UNK
     Route: 042
  3. MESNA [Suspect]
     Indication: B-CELL LYMPHOMA
     Dosage: 600 MG/M2, QD
     Route: 042
  4. DOXORUBICIN HCL [Suspect]
     Indication: B-CELL LYMPHOMA
     Dosage: 50 MG/M2, UNK
     Route: 042
  5. DEXAMETHASONE [Suspect]
     Indication: B-CELL LYMPHOMA
     Dosage: 40 MG, UNK
     Route: 048
  6. CYTARABINE [Suspect]
     Indication: B-CELL LYMPHOMA
  7. METHOTREXATE [Suspect]
     Indication: B-CELL LYMPHOMA
  8. ENOXAPARIN SODIUM [Concomitant]
     Indication: DRUG USE FOR UNKNOWN INDICATION
  9. FENTANYL [Concomitant]
     Indication: DRUG USE FOR UNKNOWN INDICATION
  10. HALOPERIDOL [Concomitant]
     Indication: DRUG USE FOR UNKNOWN INDICATION
  11. IPRATROPIUM BROMIDE [Concomitant]
     Indication: DRUG USE FOR UNKNOWN INDICATION
  12. LEVALBUTEROL HCL [Concomitant]
     Indication: DRUG USE FOR UNKNOWN INDICATION
  13. LEVOTHYROXINE SODIUM [Concomitant]
     Indication: DRUG USE FOR UNKNOWN INDICATION
  14. NALOXONE [Concomitant]
     Indication: DRUG USE FOR UNKNOWN INDICATION
  15. DAPTOMYCIN [Concomitant]
     Indication: DRUG USE FOR UNKNOWN INDICATION
  16. CIPRO [Concomitant]
     Indication: DRUG USE FOR UNKNOWN INDICATION
  17. LINEZOLID [Concomitant]
     Indication: DRUG USE FOR UNKNOWN INDICATION

REACTIONS (2)
  - SEPSIS [None]
  - STAPHYLOCOCCAL INFECTION [None]
